FAERS Safety Report 24776980 (Version 1)
Quarter: 2024Q4

REPORT INFORMATION
  Report Type: Spontaneous
  Country: US (occurrence: US)
  Receive Date: 20241226
  Receipt Date: 20241226
  Transmission Date: 20250115
  Serious: Yes (Hospitalization)
  Sender: AMGEN
  Company Number: US-AMGEN-USASP2024250228

PATIENT
  Age: 70 Year
  Sex: Female

DRUGS (7)
  1. PREDNISONE [Suspect]
     Active Substance: PREDNISONE
     Indication: Eyelid ptosis
     Dosage: 40 MILLIGRAM, QD
     Route: 065
  2. PREDNISONE [Suspect]
     Active Substance: PREDNISONE
     Indication: Diplopia
  3. AZATHIOPRINE [Concomitant]
     Active Substance: AZATHIOPRINE
     Indication: Myasthenia gravis
     Dosage: 100 MILLIGRAM, BID
  4. MORPHINE [Concomitant]
     Active Substance: MORPHINE
     Dosage: 4 MILLIGRAM
     Route: 040
  5. MORPHINE [Concomitant]
     Active Substance: MORPHINE
     Dosage: 2 MILLIGRAM
     Route: 040
  6. DULAGLUTIDE [Concomitant]
     Active Substance: DULAGLUTIDE
     Indication: Weight decreased
     Dosage: UNK
  7. IOHEXOL [Concomitant]
     Active Substance: IOHEXOL
     Dosage: 350 MILLIGRAM IODINE/ML INJECTION 100 ML
     Route: 040

REACTIONS (4)
  - Ileus [Unknown]
  - Alanine aminotransferase abnormal [Unknown]
  - Lipase abnormal [Unknown]
  - Off label use [Unknown]
